FAERS Safety Report 6184014-X (Version None)
Quarter: 2009Q2

REPORT INFORMATION
  Report Type: 
  Country: None (occurrence: None)
  Receive Date: 20090506
  Receipt Date: 20090506
  Transmission Date: 20091009
  Serious: Yes (Other)
  Sender: FDA-Public Use
  Company Number: None

PATIENT
  Sex: Female
  Weight: 63.05 kg

DRUGS (1)
  1. AMANTADINE HCL [Suspect]
     Indication: PARKINSON'S DISEASE
     Dosage: 1 CAPSULE TWICE DAILY PO
     Route: 048
     Dates: start: 20090106, end: 20090427

REACTIONS (2)
  - LIVEDO RETICULARIS [None]
  - OEDEMA PERIPHERAL [None]
